FAERS Safety Report 9368918 (Version 6)
Quarter: 2017Q1

REPORT INFORMATION
  Report Type: Report from Study
  Country: BR (occurrence: BR)
  Receive Date: 20130626
  Receipt Date: 20170217
  Transmission Date: 20170429
  Serious: Yes (Hospitalization, Other)
  Sender: FDA-Public Use
  Company Number: BR-ROCHE-1006517

PATIENT
  Age: 37 Year
  Sex: Female
  Weight: 84 kg

DRUGS (6)
  1. HYDROCORTISONE. [Concomitant]
     Active Substance: HYDROCORTISONE
     Route: 042
     Dates: start: 20121207
  2. PARACETAMOL [Concomitant]
     Active Substance: ACETAMINOPHEN
     Route: 048
     Dates: start: 20121207
  3. MABTHERA [Suspect]
     Active Substance: RITUXIMAB
     Indication: RHEUMATOID ARTHRITIS
     Route: 042
     Dates: start: 20111018
  4. MABTHERA [Suspect]
     Active Substance: RITUXIMAB
     Route: 042
     Dates: start: 20121207
  5. MABTHERA [Suspect]
     Active Substance: RITUXIMAB
     Dosage: LATEST INFUSION ON 15/NOV/2011.
     Route: 042
     Dates: start: 20111101
  6. LEVOTHYROXINE. [Concomitant]
     Active Substance: LEVOTHYROXINE
     Indication: THYROID DISORDER

REACTIONS (13)
  - Pharyngeal disorder [Unknown]
  - Petechiae [Recovering/Resolving]
  - Pruritus [Recovering/Resolving]
  - Peripheral swelling [Not Recovered/Not Resolved]
  - Thyroid cancer [Recovering/Resolving]
  - Gait disturbance [Not Recovered/Not Resolved]
  - Thyroid cancer metastatic [Unknown]
  - Hypersensitivity [Recovered/Resolved]
  - Foot deformity [Not Recovered/Not Resolved]
  - Erythema [Recovering/Resolving]
  - Pain in extremity [Not Recovered/Not Resolved]
  - Metastases to pharynx [Unknown]
  - Disease progression [Not Recovered/Not Resolved]

NARRATIVE: CASE EVENT DATE: 20111018
